FAERS Safety Report 6269010-6 (Version None)
Quarter: 2009Q3

REPORT INFORMATION
  Report Type: 
  Country: None (occurrence: None)
  Receive Date: 20090715
  Receipt Date: 20090707
  Transmission Date: 20100115
  Serious: Yes (Other)
  Sender: FDA-Public Use
  Company Number: A0796738A

PATIENT
  Age: 73 Year
  Sex: Male

DRUGS (4)
  1. AVODART [Suspect]
     Route: 048
     Dates: start: 20070101
  2. NIASPAN [Suspect]
     Dates: start: 20060101
  3. ATORVASTATIN CALCIUM [Concomitant]
  4. ALFUZOSIN HCL [Concomitant]

REACTIONS (1)
  - HEPATIC ENZYME INCREASED [None]
